FAERS Safety Report 5691770-3 (Version None)
Quarter: 2008Q2

REPORT INFORMATION
  Report Type: 
  Country: None (occurrence: None)
  Receive Date: 20080402
  Receipt Date: 20080320
  Transmission Date: 20081010
  Serious: Yes (Life-Threatening, Hospitalization)
  Sender: FDA-Public Use
  Company Number: BE-ELI_LILLY_AND_COMPANY-BE200802003437

PATIENT
  Sex: Male
  Weight: 87 kg

DRUGS (11)
  1. ALIMTA [Suspect]
     Indication: METASTASES TO BONE
     Dosage: 500 MG/M2, ONCE EVERY THREE WEEKS
     Route: 042
     Dates: start: 20080125, end: 20080125
  2. THERAPEUTIC RADIOPHARMACEUTICALS [Concomitant]
     Dosage: 4GY GIVEN THREE TIMES IN TOTAL
     Dates: start: 20080128, end: 20080204
  3. CORTICOSTEROID NOS [Concomitant]
     Dosage: UNK, UNKNOWN
  4. CORTICOSTEROID NOS [Concomitant]
     Dosage: HIGH DOSAGE AS TREATMENT
  5. VITAMIN B-12 [Concomitant]
     Dosage: UNK, UNKNOWN
  6. FOLIC ACID [Concomitant]
     Dosage: UNK, UNKNOWN
  7. OMEPRAZOLE [Concomitant]
     Dates: start: 20071008
  8. DURAGESIC-100 [Concomitant]
     Dates: start: 20071008
  9. PAROXETINE HCL [Concomitant]
     Dates: start: 20071008
  10. DAFALGAN [Concomitant]
     Dates: start: 20071008
  11. DEXAMETHASONE TAB [Concomitant]
     Indication: SUPPLEMENTATION THERAPY
     Dosage: 8 MG, DAILY (1/D)
     Dates: start: 20080124

REACTIONS (4)
  - NAUSEA [None]
  - OESOPHAGITIS [None]
  - PANCYTOPENIA [None]
  - VASCULITIS [None]
